FAERS Safety Report 15907755 (Version 1)
Quarter: 2019Q1

REPORT INFORMATION
  Report Type: Spontaneous
  Country: US (occurrence: US)
  Receive Date: 20190204
  Receipt Date: 20190204
  Transmission Date: 20190417
  Serious: No
  Sender: FDA-Public Use
  Company Number: None

PATIENT
  Age: 43 Year
  Sex: Female
  Weight: 45 kg

DRUGS (1)
  1. GAMUNEX-C [Suspect]
     Active Substance: HUMAN IMMUNOGLOBULIN G
     Indication: CHRONIC INFLAMMATORY DEMYELINATING POLYRADICULONEUROPATHY
     Dosage: ?          OTHER FREQUENCY:EVERY  14 DAYS;?
     Route: 042
     Dates: start: 20190102, end: 20190123

REACTIONS (4)
  - Ocular hyperaemia [None]
  - Eye inflammation [None]
  - Vision blurred [None]
  - Eye discharge [None]

NARRATIVE: CASE EVENT DATE: 20190123
